FAERS Safety Report 21583024 (Version 1)
Quarter: 2022Q4

REPORT INFORMATION
  Report Type: Spontaneous
  Country: DE (occurrence: DE)
  Receive Date: 20221111
  Receipt Date: 20221111
  Transmission Date: 20230113
  Serious: Yes (Hospitalization, Other)
  Sender: FDA-Public Use
  Company Number: None

PATIENT
  Age: 82 Year
  Sex: Female
  Weight: 36 kg

DRUGS (11)
  1. SPIRONOLACTONE [Suspect]
     Active Substance: SPIRONOLACTONE
     Indication: Product used for unknown indication
     Dosage: 50 MG, 1-0-0-0, TABLETS
  2. MOXIFLOXACIN HYDROCHLORIDE [Suspect]
     Active Substance: MOXIFLOXACIN HYDROCHLORIDE
     Indication: Product used for unknown indication
  3. CANDESARTAN [Suspect]
     Active Substance: CANDESARTAN
     Indication: Product used for unknown indication
     Dosage: 8 MG, 1-0-1-0, TABLETS
  4. TORSEMIDE [Suspect]
     Active Substance: TORSEMIDE
     Indication: Product used for unknown indication
     Dosage: 10 MG, 1-0-0-0, TABLETS
  5. ASPIRIN [Concomitant]
     Active Substance: ASPIRIN
     Dosage: 100 MG, 0-1-0-0, TABLETS
  6. FENOTEROL HYDROBROMIDE\IPRATROPIUM BROMIDE [Concomitant]
     Active Substance: FENOTEROL HYDROBROMIDE\IPRATROPIUM BROMIDE
     Dosage: 0.5MG/0.25MG/ML, 1-1-1-1, PUMP SOLUTION
  7. CARVEDILOL [Concomitant]
     Active Substance: CARVEDILOL
     Dosage: 6.25 MG, 1-0-1-0, TABLETS
  8. CHOLECALCIFEROL [Concomitant]
     Active Substance: CHOLECALCIFEROL
     Dosage: 1000 IU, 1-0-0-0, TABLETS
  9. FOSTER [Concomitant]
     Active Substance: BECLOMETHASONE\FORMOTEROL
     Dosage: 100/6 MCG, 1-0-1-0, METERED DOSE INHALER
  10. METAMIZOLE [Concomitant]
     Active Substance: METAMIZOLE
     Dosage: 500 MG, AS REQUIRED, TABLETS
  11. MONTELUKAST [Concomitant]
     Active Substance: MONTELUKAST SODIUM
     Dosage: 10 MG, 1-0-0-0, TABLETS

REACTIONS (10)
  - Product prescribing error [Unknown]
  - Dyspnoea [Unknown]
  - Productive cough [Unknown]
  - General physical health deterioration [Unknown]
  - Product monitoring error [Unknown]
  - Decreased appetite [Unknown]
  - Nausea [Unknown]
  - Acute kidney injury [Unknown]
  - Labelled drug-drug interaction medication error [Unknown]
  - Dehydration [Unknown]

NARRATIVE: CASE EVENT DATE: 20200225
